FAERS Safety Report 13420911 (Version 4)
Quarter: 2018Q1

REPORT INFORMATION
  Report Type: Spontaneous
  Country: IT (occurrence: IT)
  Receive Date: 20170410
  Receipt Date: 20180312
  Transmission Date: 20180508
  Serious: Yes (Other)
  Sender: FDA-Public Use
  Company Number: IT-ROCHE-1917433

PATIENT
  Age: 56 Year
  Sex: Female

DRUGS (3)
  1. PERJETA [Suspect]
     Active Substance: PERTUZUMAB
     Indication: BREAST NEOPLASM
     Dosage: 420 MG VIAL (GLASS) - 30 MG/ML - 1 VIAL, CYCLICAL?MOST RECENT DOSE ON 30/JAN/2017
     Route: 042
     Dates: start: 20160920
  2. HERCEPTIN [Suspect]
     Active Substance: TRASTUZUMAB
     Indication: BREAST NEOPLASM
     Dosage: MOST RECENT DOSE ON 30/JAN/2017
     Route: 042
     Dates: start: 20160920
  3. PACLITAXEL. [Suspect]
     Active Substance: PACLITAXEL
     Indication: BREAST NEOPLASM
     Dosage: 6 MG/ML 1 GLASS VIAL CONTAINING 5 ML, CYCLICAL?MOS RECENT DOSE ON 30/JAN/2017
     Route: 042
     Dates: start: 20160920

REACTIONS (2)
  - Neurotoxicity [Recovering/Resolving]
  - Nail dystrophy [Recovering/Resolving]

NARRATIVE: CASE EVENT DATE: 20170330
